FAERS Safety Report 8001425-8 (Version None)
Quarter: 2011Q4

REPORT INFORMATION
  Report Type: 
  Country: None (occurrence: None)
  Receive Date: 20111219
  Receipt Date: 20111203
  Transmission Date: 20120403
  Serious: Yes (Disabling, Other)
  Sender: FDA-Public Use
  Company Number: 2011AP002952

PATIENT
  Age: 42 Year
  Sex: Male

DRUGS (3)
  1. CORTICOSTEROID NOS [Suspect]
     Indication: PRODUCT USED FOR UNKNOWN INDICATION
     Dosage: PO
     Route: 048
  2. ANTIHYPERTENSIVES [Concomitant]
  3. ALLOPURINOL [Suspect]
     Indication: PRODUCT USED FOR UNKNOWN INDICATION

REACTIONS (8)
  - VITRITIS [None]
  - STEVENS-JOHNSON SYNDROME [None]
  - CHORIORETINITIS [None]
  - VASCULITIS [None]
  - DRUG HYPERSENSITIVITY [None]
  - BLOOD CREATININE INCREASED [None]
  - DRY EYE [None]
  - CYTOMEGALOVIRUS CHORIORETINITIS [None]
